FAERS Safety Report 5834356-X (Version None)
Quarter: 2008Q3

REPORT INFORMATION
  Report Type: 
  Country: None (occurrence: None)
  Receive Date: 20080805
  Receipt Date: 20080724
  Transmission Date: 20090109
  Serious: Yes (Hospitalization)
  Sender: FDA-Public Use
  Company Number: FR-PFIZER INC-2007081763

PATIENT
  Sex: Male

DRUGS (9)
  1. TRIFLUCAN [Suspect]
     Route: 048
  2. ALL OTHER THERAPEUTIC PRODUCTS [Suspect]
     Indication: ACUTE LYMPHOCYTIC LEUKAEMIA RECURRENT
     Route: 042
     Dates: start: 20070608, end: 20070612
  3. CIFLOX [Suspect]
     Route: 048
     Dates: start: 20070606, end: 20070612
  4. AMIKLIN [Suspect]
     Dosage: DAILY DOSE:850MG
     Dates: start: 20070609, end: 20070614
  5. ZELITREX [Suspect]
     Dosage: TEXT:2 DF
     Route: 048
  6. NITROGLYCERIN [Suspect]
     Dosage: TEXT:6 G
     Route: 042
  7. PLITICAN [Concomitant]
     Dates: start: 20070504, end: 20070517
  8. PLITICAN [Concomitant]
  9. DOLIPRANE [Concomitant]

REACTIONS (5)
  - OEDEMA PERIPHERAL [None]
  - PAIN IN EXTREMITY [None]
  - PRURITUS [None]
  - RASH [None]
  - SKIN EXFOLIATION [None]
